FAERS Safety Report 9554368 (Version 1)
Quarter: 2013Q3

REPORT INFORMATION
  Report Type: Spontaneous
  Country: US (occurrence: US)
  Receive Date: 20130925
  Receipt Date: 20130925
  Transmission Date: 20140515
  Serious: No
  Sender: FDA-Public Use
  Company Number: US-MYLANLABS-2013S1006505

PATIENT
  Age: 76 Year
  Sex: Female

DRUGS (1)
  1. FUROSEMIDE TABLETS, USP [Suspect]
     Route: 048
     Dates: start: 20121205, end: 2013

REACTIONS (2)
  - Gastrointestinal pain [Recovered/Resolved]
  - Micturition disorder [Recovered/Resolved]
